FAERS Safety Report 4796250-5 (Version None)
Quarter: 2005Q4

REPORT INFORMATION
  Report Type: 
  Country: None (occurrence: None)
  Receive Date: 20051007
  Receipt Date: 20050927
  Transmission Date: 20060501
  Serious: Yes (Other)
  Sender: FDA-Public Use
  Company Number: 2002058103

PATIENT
  Age: 78 Year
  Sex: Female
  Weight: 63.5036 kg

DRUGS (4)
  1. ZITHROMAX [Suspect]
     Indication: COUGH
     Dosage: 500 MG (DAILY), ORAL
     Route: 048
     Dates: start: 20020911, end: 20020911
  2. ATENOLOL [Concomitant]
  3. FOSAMAX [Concomitant]
  4. ANTIBIOTICS (ANTIBIOTICS) [Concomitant]

REACTIONS (10)
  - EAR DISCOMFORT [None]
  - EAR HAEMORRHAGE [None]
  - EAR PAIN [None]
  - EAR PRURITUS [None]
  - FEELING ABNORMAL [None]
  - HEARING IMPAIRED [None]
  - INSOMNIA [None]
  - MALAISE [None]
  - TENDERNESS [None]
  - TINNITUS [None]
